FAERS Safety Report 20341038 (Version 1)
Quarter: 2022Q1

REPORT INFORMATION
  Report Type: Spontaneous
  Country: CA (occurrence: CA)
  Receive Date: 20220117
  Receipt Date: 20220117
  Transmission Date: 20220424
  Serious: Yes (Death, Hospitalization, Other)
  Sender: FDA-Public Use
  Company Number: CA-NAPPMUNDI-GBR-2022-0094156

PATIENT
  Age: 67 Year
  Sex: Female

DRUGS (5)
  1. MORPHINE SULFATE [Suspect]
     Active Substance: MORPHINE SULFATE
     Indication: Product used for unknown indication
     Dosage: 15 MG, UNK
     Route: 065
  2. MORPHINE SULFATE [Suspect]
     Active Substance: MORPHINE SULFATE
     Dosage: 5 MG, UNK
     Route: 065
  3. ZELBORAF [Suspect]
     Active Substance: VEMURAFENIB
     Indication: Metastatic malignant melanoma
     Dosage: 960 MG, BID
     Route: 048
  4. ACETAMINOPHEN [Concomitant]
     Active Substance: ACETAMINOPHEN
     Dosage: UNK
     Route: 065
  5. COUMADIN [Concomitant]
     Active Substance: WARFARIN SODIUM
     Dosage: UNK
     Route: 065

REACTIONS (12)
  - Anxiety [Fatal]
  - Constipation [Fatal]
  - Drug ineffective [Fatal]
  - Dyspnoea [Fatal]
  - Insomnia [Fatal]
  - Malignant neoplasm progression [Fatal]
  - Metastases to spine [Fatal]
  - Nausea [Fatal]
  - Pain [Fatal]
  - Pain in extremity [Fatal]
  - Rash pruritic [Fatal]
  - Weight decreased [Fatal]
